FAERS Safety Report 12858499 (Version 1)
Quarter: 2016Q4

REPORT INFORMATION
  Report Type: Spontaneous
  Country: SA (occurrence: SA)
  Receive Date: 20161018
  Receipt Date: 20161018
  Transmission Date: 20170207
  Serious: Yes (Death)
  Sender: FDA-Public Use
  Company Number: SA-BIOMARINAP-SA-2016-111475

PATIENT
  Age: 17 Year
  Sex: Female
  Weight: 17 kg

DRUGS (1)
  1. VIMIZIM [Suspect]
     Active Substance: ELOSULFASE ALFA
     Indication: MUCOPOLYSACCHARIDOSIS IV
     Dosage: 35 MG, QW
     Route: 042
     Dates: start: 20160104

REACTIONS (4)
  - Respiratory depression [Unknown]
  - Ascites [Unknown]
  - Cardiac failure [Fatal]
  - Pulmonary hypoperfusion [Unknown]

NARRATIVE: CASE EVENT DATE: 20161016
